FAERS Safety Report 13356225 (Version 2)
Quarter: 2017Q2

REPORT INFORMATION
  Report Type: Spontaneous
  Country: US (occurrence: US)
  Receive Date: 20170321
  Receipt Date: 20170413
  Transmission Date: 20170830
  Serious: No
  Sender: FDA-Public Use
  Company Number: US-PFIZER INC-2017121272

PATIENT
  Sex: Female

DRUGS (1)
  1. CHANTIX [Suspect]
     Active Substance: VARENICLINE TARTRATE
     Dosage: 1 MG, 2X/DAY

REACTIONS (2)
  - Nausea [Recovered/Resolved]
  - Intentional product misuse [Unknown]
